FAERS Safety Report 17860386 (Version 1)
Quarter: 2020Q2

REPORT INFORMATION
  Report Type: Spontaneous
  Country: NO (occurrence: NO)
  Receive Date: 20200604
  Receipt Date: 20200604
  Transmission Date: 20200714
  Serious: Yes (Other)
  Sender: FDA-Public Use
  Company Number: NO-EMD SERONO-E2B_90077731

PATIENT
  Age: 38 Year
  Sex: Female

DRUGS (1)
  1. MAVENCLAD [Suspect]
     Active Substance: CLADRIBINE
     Indication: MULTIPLE SCLEROSIS
     Dosage: 5 + 5 TABLETS
     Route: 048
     Dates: start: 20181014, end: 20191116

REACTIONS (2)
  - Menstruation irregular [Recovering/Resolving]
  - Menorrhagia [Recovering/Resolving]

NARRATIVE: CASE EVENT DATE: 201911
